FAERS Safety Report 17908538 (Version 1)
Quarter: 2020Q2

REPORT INFORMATION
  Report Type: Spontaneous
  Country: CN (occurrence: CN)
  Receive Date: 20200617
  Receipt Date: 20200617
  Transmission Date: 20200714
  Serious: Yes (Death, Life-Threatening, Other)
  Sender: FDA-Public Use
  Company Number: CN-ASPEN-GLO2020CN006080

PATIENT
  Age: 4 Month
  Sex: Female
  Weight: 6 kg

DRUGS (2)
  1. CYCLOPHOSPHAMIDE. [Suspect]
     Active Substance: CYCLOPHOSPHAMIDE
     Indication: BONE MARROW CONDITIONING REGIMEN
     Dosage: 50 MG/KG X 2 DAYS (2-3 DAYS BEFRE TRANSPLANT)
     Route: 065
  2. BUSULFAN. [Suspect]
     Active Substance: BUSULFAN
     Indication: BONE MARROW CONDITIONING REGIMEN
     Dosage: 0.8 MG/KG 0.8 MG/KG, 4 TIMES 5-7 DAYS BEFORE TRANSPLANTATION
     Route: 065

REACTIONS (8)
  - Pleural effusion [Fatal]
  - Product use in unapproved indication [Unknown]
  - Respiratory tract infection [Fatal]
  - Cardio-respiratory arrest [Fatal]
  - Pulmonary haemorrhage [Fatal]
  - Ascites [Fatal]
  - Shock [Fatal]
  - Disseminated intravascular coagulation [Fatal]
